FAERS Safety Report 10290627 (Version 1)
Quarter: 2014Q3

REPORT INFORMATION
  Report Type: Spontaneous
  Country: IT (occurrence: None)
  Receive Date: 20140708
  Receipt Date: 20140708
  Transmission Date: 20150326
  Serious: Yes (Hospitalization)
  Sender: FDA-Public Use
  Company Number: AUR-APL-2014-07167

PATIENT
  Sex: Female

DRUGS (1)
  1. METFORMIN (METFORMIN) UNKNOWN, UNKNOWN [Suspect]
     Active Substance: METFORMIN HYDROCHLORIDE
     Indication: PRODUCT USED FOR UNKNOWN INDICATION
     Dosage: UNK UNK ONCE A DAY, UNKNOWN

REACTIONS (2)
  - Hyperhidrosis [None]
  - Hypoglycaemia [None]

NARRATIVE: CASE EVENT DATE: 20140308
